FAERS Safety Report 7755785-3 (Version None)
Quarter: 2011Q3

REPORT INFORMATION
  Report Type: 
  Country: None (occurrence: None)
  Receive Date: 20110916
  Receipt Date: 20110909
  Transmission Date: 20111222
  Serious: Yes (Death, Other)
  Sender: FDA-Public Use
  Company Number: US-GENZYME-CAMP-1001895

PATIENT
  Age: 72 Year
  Sex: Female

DRUGS (11)
  1. CAMPATH [Suspect]
     Dosage: 30 MG (CAMPATH GIVEN ON ALTERNATING DAYS)
     Route: 042
  2. CARMUSTINE [Suspect]
     Indication: PERIPHERAL T-CELL LYMPHOMA UNSPECIFIED
     Dosage: UNK
     Route: 065
  3. CYTARABINE [Suspect]
     Indication: PERIPHERAL T-CELL LYMPHOMA UNSPECIFIED
     Dosage: UNK
     Route: 065
  4. CAMPATH [Suspect]
     Indication: PERIPHERAL T-CELL LYMPHOMA UNSPECIFIED
     Dosage: 3 MG (CAMPATH GIVEN ON ALTERNATING DAYS)
     Route: 042
  5. CYTARABINE [Suspect]
     Indication: STEM CELL TRANSPLANT
  6. CAMPATH [Suspect]
     Indication: STEM CELL TRANSPLANT
     Dosage: 10 MG (CAMPATH GIVEN ON ALTERNATING DAYS)
     Route: 042
  7. MELPHALAN HYDROCHLORIDE [Suspect]
     Indication: STEM CELL TRANSPLANT
  8. CARMUSTINE [Suspect]
     Indication: STEM CELL TRANSPLANT
  9. ETOPOSIDE [Suspect]
     Indication: PERIPHERAL T-CELL LYMPHOMA UNSPECIFIED
     Dosage: UNK
     Route: 065
  10. ETOPOSIDE [Suspect]
     Indication: STEM CELL TRANSPLANT
  11. MELPHALAN HYDROCHLORIDE [Suspect]
     Indication: PERIPHERAL T-CELL LYMPHOMA UNSPECIFIED
     Dosage: UNK
     Route: 065

REACTIONS (7)
  - PARAINFLUENZAE VIRUS INFECTION [None]
  - CYSTITIS HAEMORRHAGIC [None]
  - MULTI-ORGAN FAILURE [None]
  - CLOSTRIDIUM DIFFICILE COLITIS [None]
  - BK VIRUS INFECTION [None]
  - CYTOMEGALOVIRUS VIRAEMIA [None]
  - GASTROENTERITIS ADENOVIRUS [None]
